FAERS Safety Report 8884876 (Version 1)
Quarter: 2012Q4

REPORT INFORMATION
  Report Type: 
  Country: DE (occurrence: DE)
  Receive Date: 20121105
  Receipt Date: 20121105
  Transmission Date: 20130627
  Serious: Yes (Other)
  Sender: FDA-Public Use
  Company Number: DE-009507513-1211DEU000048

PATIENT
  Age: 65 Year
  Sex: Male

DRUGS (3)
  1. PEGINTRON [Suspect]
     Indication: CHRONIC HEPATITIS C
     Dosage: one weekly
     Dates: start: 200609, end: 200702
  2. RIBAVIRIN [Suspect]
  3. VITAMINS (UNSPECIFIED) [Concomitant]
     Indication: CHRONIC HEPATITIS C
     Dosage: UNK
     Route: 048
     Dates: start: 200609, end: 200702

REACTIONS (5)
  - Depression [Recovered/Resolved]
  - Fatigue [Recovered/Resolved]
  - Sleep disorder [Recovered/Resolved]
  - Weight decreased [Recovered/Resolved]
  - Rash [Recovered/Resolved]
